FAERS Safety Report 25208504 (Version 1)
Quarter: 2025Q2

REPORT INFORMATION
  Report Type: Spontaneous
  Country: PL (occurrence: PL)
  Receive Date: 20250417
  Receipt Date: 20250417
  Transmission Date: 20250717
  Serious: Yes (Death, Other)
  Sender: BRISTOL MYERS SQUIBB
  Company Number: PL-BRISTOL-MYERS SQUIBB COMPANY-2025-054448

PATIENT
  Age: 74 Year
  Sex: Female
  Weight: 71 kg

DRUGS (3)
  1. AZACITIDINE [Suspect]
     Active Substance: AZACITIDINE
     Indication: Myelodysplastic syndrome with excess blasts
     Dates: start: 20240523, end: 20240529
  2. AZACITIDINE [Suspect]
     Active Substance: AZACITIDINE
     Dates: start: 20240715, end: 20240721
  3. AZACITIDINE [Suspect]
     Active Substance: AZACITIDINE
     Dates: start: 20240817, end: 20240823

REACTIONS (4)
  - Bone marrow failure [Fatal]
  - Anaemia [Unknown]
  - Granulocytopenia [Unknown]
  - Thrombocytopenia [Unknown]

NARRATIVE: CASE EVENT DATE: 20240101
